FAERS Safety Report 15797741 (Version 1)
Quarter: 2019Q1

REPORT INFORMATION
  Report Type: Spontaneous
  Country: CN (occurrence: CN)
  Receive Date: 20190108
  Receipt Date: 20190108
  Transmission Date: 20190417
  Serious: Yes (Other)
  Sender: FDA-Public Use
  Company Number: CN-ASTRAZENECA-2019SE02286

PATIENT
  Sex: Male
  Weight: 75 kg

DRUGS (4)
  1. METOCLOPRAMIDE HYDROCHLORIDE. [Concomitant]
     Active Substance: METOCLOPRAMIDE HYDROCHLORIDE
     Indication: VOMITING
     Route: 030
     Dates: start: 20181101, end: 20181101
  2. ESOMEPRAZOLE SODIUM. [Suspect]
     Active Substance: ESOMEPRAZOLE SODIUM
     Indication: INFECTION
     Route: 041
     Dates: start: 20181101, end: 20181101
  3. LEVOFLOXACIN. [Suspect]
     Active Substance: LEVOFLOXACIN
     Indication: INFECTION
     Route: 041
     Dates: start: 20181101, end: 20181101
  4. SODIUM CHLORIDE. [Suspect]
     Active Substance: SODIUM CHLORIDE
     Indication: INFECTION
     Route: 041
     Dates: start: 20181101, end: 20181101

REACTIONS (2)
  - Ventricular arrhythmia [Recovered/Resolved]
  - Pruritus [Recovered/Resolved]
